FAERS Safety Report 6930145-3 (Version None)
Quarter: 2010Q3

REPORT INFORMATION
  Report Type: 
  Country: None (occurrence: None)
  Receive Date: 20100817
  Receipt Date: 20100817
  Transmission Date: 20110219
  Serious: No
  Sender: FDA-Public Use
  Company Number: None

PATIENT
  Age: 41 Year
  Sex: Female
  Weight: 136.5327 kg

DRUGS (1)
  1. CETIRIZINE HCL [Suspect]
     Indication: NASOPHARYNGITIS
     Dosage: 10 MG TABLET
     Dates: start: 20100624

REACTIONS (5)
  - BLISTER [None]
  - PAIN [None]
  - PRURITUS [None]
  - RASH GENERALISED [None]
  - SCRATCH [None]
